FAERS Safety Report 4736224-3 (Version None)
Quarter: 2005Q3

REPORT INFORMATION
  Report Type: 
  Country: None (occurrence: None)
  Receive Date: 20050808
  Receipt Date: 20050803
  Transmission Date: 20060218
  Serious: Yes (Hospitalization)
  Sender: FDA-Public Use
  Company Number: PHNR2005AU01193

PATIENT
  Age: 75 Year
  Sex: Female

DRUGS (2)
  1. FAMVIR [Suspect]
     Indication: HERPES ZOSTER
     Dosage: UNK, TID
     Route: 048
     Dates: start: 20050801
  2. COVERSYL [Concomitant]

REACTIONS (1)
  - SYNCOPE [None]
